FAERS Safety Report 17082327 (Version 1)
Quarter: 2019Q4

REPORT INFORMATION
  Report Type: Spontaneous
  Country: IT (occurrence: IT)
  Receive Date: 20191127
  Receipt Date: 20191127
  Transmission Date: 20200122
  Serious: Yes (Hospitalization)
  Sender: FDA-Public Use
  Company Number: IT-MYLANLABS-2019M1116470

PATIENT
  Age: 55 Year
  Sex: Female

DRUGS (5)
  1. MITOTANE [Suspect]
     Active Substance: MITOTANE
     Indication: ADRENOCORTICAL CARCINOMA
     Dosage: UNK
     Route: 065
     Dates: start: 201701
  2. ETOPOSIDE. [Suspect]
     Active Substance: ETOPOSIDE
     Indication: ADRENOCORTICAL CARCINOMA
     Dosage: EDP REGIMEN
     Route: 065
     Dates: start: 201703
  3. DOXORUBICIN [Suspect]
     Active Substance: DOXORUBICIN
     Indication: ADRENOCORTICAL CARCINOMA
     Dosage: EDP REGIMEN
     Route: 065
     Dates: start: 201703
  4. CIPROFLOXACIN. [Suspect]
     Active Substance: CIPROFLOXACIN
     Indication: DEVICE RELATED INFECTION
     Dosage: UNK
     Route: 042
     Dates: start: 2017, end: 2017
  5. CISPLATIN. [Suspect]
     Active Substance: CISPLATIN
     Indication: ADRENOCORTICAL CARCINOMA
     Dosage: EDP REGIMEN
     Route: 065
     Dates: start: 201703

REACTIONS (2)
  - Device related infection [Recovered/Resolved]
  - Infusion site reaction [Recovering/Resolving]

NARRATIVE: CASE EVENT DATE: 2017
